FAERS Safety Report 4323525-6 (Version None)
Quarter: 2004Q1

REPORT INFORMATION
  Report Type: 
  Country: None (occurrence: None)
  Receive Date: 20040324
  Receipt Date: 20040324
  Transmission Date: 20041129
  Serious: Yes (Other)
  Sender: FDA-Public Use
  Company Number: None

PATIENT
  Age: 28 Year
  Sex: Female
  Weight: 66.6788 kg

DRUGS (2)
  1. PAXIL [Suspect]
     Indication: DEPRESSION
     Dates: start: 19941220, end: 20040313
  2. LOW-DOSE BIRTH CONTROL PILLS [Concomitant]

REACTIONS (10)
  - CHILLS [None]
  - DIARRHOEA [None]
  - DISTURBANCE IN ATTENTION [None]
  - FEELING ABNORMAL [None]
  - HEADACHE [None]
  - IRRITABILITY [None]
  - MOOD SWINGS [None]
  - MUSCLE SPASMS [None]
  - NAUSEA [None]
  - PANIC REACTION [None]
